FAERS Safety Report 5246201-4 (Version None)
Quarter: 2007Q1

REPORT INFORMATION
  Report Type: 
  Country: None (occurrence: None)
  Receive Date: 20070220
  Receipt Date: 20070209
  Transmission Date: 20070707
  Serious: Yes (Life-Threatening)
  Sender: FDA-Public Use
  Company Number: 2006US002445

PATIENT
  Age: 76 Year
  Sex: Female
  Weight: 46 kg

DRUGS (1)
  1. ADENOSCAN(ADNOSINE) INJECTION [Suspect]
     Indication: SCAN MYOCARDIAL PERFUSION
     Dosage: 33.12 MG, IV  NOS
     Route: 042
     Dates: start: 20061024, end: 20061024

REACTIONS (3)
  - MYOCARDIAL ISCHAEMIA [None]
  - VENTRICULAR FIBRILLATION [None]
  - VENTRICULAR FLUTTER [None]
